FAERS Safety Report 25005639 (Version 1)
Quarter: 2025Q1

REPORT INFORMATION
  Report Type: Spontaneous
  Country: US (occurrence: None)
  Receive Date: 20250224
  Receipt Date: 20250224
  Transmission Date: 20250409
  Serious: Yes (Hospitalization)
  Sender: FDA-CTU
  Company Number: None

PATIENT

DRUGS (4)
  1. IMATINIB MESYLATE [Suspect]
     Active Substance: IMATINIB MESYLATE
     Indication: Chronic myeloid leukaemia
     Dosage: FREQUENCY : DAILY;?
     Route: 048
     Dates: start: 202501
  2. IMATINIB MESYLATE [Suspect]
     Active Substance: IMATINIB MESYLATE
     Indication: Philadelphia chromosome positive
  3. DUPIXENT [Concomitant]
     Active Substance: DUPILUMAB
  4. GLEEVEC [Concomitant]
     Active Substance: IMATINIB MESYLATE

REACTIONS (4)
  - White blood cell count decreased [None]
  - Platelet count decreased [None]
  - Influenza [None]
  - Pneumonia [None]
